FAERS Safety Report 5073665-1 (Version None)
Quarter: 2006Q3

REPORT INFORMATION
  Report Type: 
  Country: None (occurrence: None)
  Receive Date: 20060808
  Receipt Date: 20041018
  Transmission Date: 20061208
  Serious: No
  Sender: FDA-Public Use
  Company Number: US-AMGEN-KDL096420

PATIENT
  Sex: Male
  Weight: 101.7 kg

DRUGS (2)
  1. PROCRIT [Suspect]
     Indication: ANAEMIA OF MALIGNANT DISEASE
     Dates: start: 20040920
  2. DIURETICS [Concomitant]

REACTIONS (5)
  - ARTHROPOD STING [None]
  - CONDITION AGGRAVATED [None]
  - PSORIASIS [None]
  - RASH PAPULAR [None]
  - TESTICULAR SWELLING [None]
